FAERS Safety Report 4370376-2 (Version None)
Quarter: 2004Q2

REPORT INFORMATION
  Report Type: 
  Country: None (occurrence: None)
  Receive Date: 20040603
  Receipt Date: 20040220
  Transmission Date: 20050107
  Serious: No
  Sender: FDA-Public Use
  Company Number: US-BRISTOL-MYERS SQUIBB COMPANY-12513594

PATIENT
  Age: 94 Year
  Sex: Female
  Weight: 68 kg

DRUGS (5)
  1. ABILIFY [Suspect]
     Indication: AMNESIA
     Dosage: REGIMEN FROM 2.5 MG UP TO 10 MG STARTING IN JAN-04. D/C'D ON 10-FEB-04.
     Route: 048
     Dates: start: 20040101, end: 20040210
  2. ZANTAC [Concomitant]
  3. ASPIRIN [Concomitant]
  4. MULTI-VITAMIN [Concomitant]
  5. HYDRODIURIL [Concomitant]

REACTIONS (5)
  - DYSARTHRIA [None]
  - HALLUCINATION [None]
  - HYPERSOMNIA [None]
  - SALIVARY HYPERSECRETION [None]
  - VERBAL ABUSE [None]
